FAERS Safety Report 9867051 (Version 4)
Quarter: 2014Q1

REPORT INFORMATION
  Report Type: Spontaneous
  Country: AR (occurrence: AR)
  Receive Date: 20140204
  Receipt Date: 20140214
  Transmission Date: 20141002
  Serious: Yes (Other)
  Sender: FDA-Public Use
  Company Number: AR-AMGEN-ARGSP2013071360

PATIENT
  Age: 60 Year
  Sex: Female

DRUGS (2)
  1. ENBREL [Suspect]
     Indication: RHEUMATOID ARTHRITIS
     Dosage: 25 MG, FORTNIGHTLY
     Route: 065
     Dates: start: 20050601, end: 20131002
  2. GLUCOSAMINE [Concomitant]
     Dosage: UNK

REACTIONS (5)
  - Procedural complication [Not Recovered/Not Resolved]
  - Foot deformity [Not Recovered/Not Resolved]
  - Bunion [Not Recovered/Not Resolved]
  - Mobility decreased [Not Recovered/Not Resolved]
  - Nerve injury [Not Recovered/Not Resolved]
